FAERS Safety Report 20640959 (Version 1)
Quarter: 2022Q1

REPORT INFORMATION
  Report Type: Other
  Country: US (occurrence: US)
  Receive Date: 20220327
  Receipt Date: 20220327
  Transmission Date: 20220423
  Serious: Yes (Hospitalization)
  Sender: FDA-Public Use
  Company Number: US-HLS-202200282

PATIENT
  Age: 37 Year
  Sex: Male

DRUGS (1)
  1. CLOZAPINE [Suspect]
     Active Substance: CLOZAPINE
     Route: 065

REACTIONS (17)
  - Agitation [Recovering/Resolving]
  - Breath sounds abnormal [Recovering/Resolving]
  - Blood creatine phosphokinase increased [Recovering/Resolving]
  - Disorientation [Recovering/Resolving]
  - Retching [Recovering/Resolving]
  - Blood lactic acid increased [Recovering/Resolving]
  - Mental status changes [Recovering/Resolving]
  - Alanine aminotransferase increased [Recovering/Resolving]
  - Aspartate aminotransferase increased [Recovering/Resolving]
  - Gastrointestinal sounds abnormal [Recovering/Resolving]
  - Miosis [Recovering/Resolving]
  - Salivary hypersecretion [Recovering/Resolving]
  - Respiratory rate decreased [Recovering/Resolving]
  - Dry skin [Recovering/Resolving]
  - Skin warm [Recovering/Resolving]
  - Dysarthria [Recovering/Resolving]
  - Tachycardia [Recovering/Resolving]
